FAERS Safety Report 6528151-6 (Version None)
Quarter: 2010Q1

REPORT INFORMATION
  Report Type: 
  Country: None (occurrence: None)
  Receive Date: 20100106
  Receipt Date: 20091229
  Transmission Date: 20100710
  Serious: Yes (Other)
  Sender: FDA-Public Use
  Company Number: US-BAYER-201010175NA

PATIENT
  Age: 30 Year
  Sex: Female

DRUGS (6)
  1. YAZ [Suspect]
     Indication: DRUG USE FOR UNKNOWN INDICATION
     Dates: start: 20070101, end: 20080101
  2. YAZ [Suspect]
     Dates: start: 20080201, end: 20091201
  3. YASMIN [Suspect]
     Indication: DRUG USE FOR UNKNOWN INDICATION
     Dates: start: 20070101, end: 20080101
  4. YASMIN [Suspect]
     Dates: start: 20080201, end: 20091201
  5. OCELLA [Suspect]
     Indication: DRUG USE FOR UNKNOWN INDICATION
     Dates: start: 20070101, end: 20080101
  6. OCELLA [Suspect]
     Dates: start: 20080201, end: 20091201

REACTIONS (1)
  - GALLBLADDER DISORDER [None]
